FAERS Safety Report 4519206-6 (Version None)
Quarter: 2004Q4

REPORT INFORMATION
  Report Type: 
  Country: None (occurrence: None)
  Receive Date: 20041206
  Receipt Date: 20041022
  Transmission Date: 20050328
  Serious: Yes (Life-Threatening, Hospitalization, Disabling)
  Sender: FDA-Public Use
  Company Number: US-MERCK-0410USA03557

PATIENT
  Age: 52 Year
  Sex: Female

DRUGS (7)
  1. VIOXX [Suspect]
     Indication: ARTHRITIS
     Route: 048
     Dates: start: 20030101, end: 20040101
  2. TOPROL-XL [Concomitant]
     Route: 065
  3. PROMETHAZINE [Concomitant]
     Route: 065
  4. ESTRATEST [Concomitant]
     Route: 065
  5. NYSTATIN [Concomitant]
     Route: 065
  6. ENDOCET [Concomitant]
     Route: 065
  7. ZOCOR [Concomitant]
     Route: 065

REACTIONS (4)
  - CARDIAC FAILURE [None]
  - CHEST PAIN [None]
  - CHRONIC GRANULOMATOUS DISEASE [None]
  - CHRONIC OBSTRUCTIVE AIRWAYS DISEASE [None]
